FAERS Safety Report 17316793 (Version 1)
Quarter: 2020Q1

REPORT INFORMATION
  Report Type: Spontaneous
  Country: US (occurrence: US)
  Receive Date: 20200124
  Receipt Date: 20200124
  Transmission Date: 20200409
  Serious: No
  Sender: FDA-Public Use
  Company Number: US-PERRIGO-19US008840

PATIENT
  Age: 9 Year
  Sex: Female
  Weight: 37.64 kg

DRUGS (1)
  1. IBUPROFEN. [Suspect]
     Active Substance: IBUPROFEN
     Indication: ARTHRALGIA
     Dosage: 300 MG, SINGLE
     Route: 048
     Dates: start: 20190722, end: 20190722

REACTIONS (3)
  - Lip swelling [Recovering/Resolving]
  - Periorbital swelling [Recovered/Resolved]
  - Hypersensitivity [Recovering/Resolving]

NARRATIVE: CASE EVENT DATE: 20190722
